FAERS Safety Report 18607897 (Version 5)
Quarter: 2025Q4

REPORT INFORMATION
  Report Type: Report from Study
  Country: EU (occurrence: EU)
  Receive Date: 20201211
  Receipt Date: 20251126
  Transmission Date: 20260119
  Serious: No
  Sender: TAKEDA
  Company Number: EU-SHIRE-ES202024178

PATIENT
  Age: 8 Year
  Sex: Male

DRUGS (8)
  1. TEDUGLUTIDE [Suspect]
     Active Substance: TEDUGLUTIDE
     Indication: Short-bowel syndrome
     Dosage: 1.2 MILLIGRAM, QD
     Dates: start: 20190827, end: 20191211
  2. TEDUGLUTIDE [Suspect]
     Active Substance: TEDUGLUTIDE
     Dosage: 1.6 MILLIGRAM, QD
     Dates: start: 202303, end: 20231018
  3. TEDUGLUTIDE [Suspect]
     Active Substance: TEDUGLUTIDE
     Dosage: 1.7 MILLIGRAM, QD
     Dates: start: 20231018, end: 20241106
  4. TEDUGLUTIDE [Suspect]
     Active Substance: TEDUGLUTIDE
     Dosage: 1.9 MILLIGRAM, QD
     Dates: start: 20241106, end: 20250506
  5. TEDUGLUTIDE [Suspect]
     Active Substance: TEDUGLUTIDE
     Dosage: 2 MILLIGRAM, QD
     Dates: start: 20250507
  6. NITROUS OXIDE [Concomitant]
     Active Substance: NITROUS OXIDE
     Indication: Sedative therapy
     Dosage: UNK UNK, SINGLE
     Dates: start: 20200411, end: 20200411
  7. NITROUS OXIDE [Concomitant]
     Active Substance: NITROUS OXIDE
     Dosage: UNK UNK, SINGLE
     Dates: start: 20201113, end: 20201113
  8. NITROUS OXIDE [Concomitant]
     Active Substance: NITROUS OXIDE
     Dosage: UNK UNK, SINGLE
     Dates: start: 20201112, end: 20201112

REACTIONS (1)
  - Proctalgia [Recovered/Resolved]

NARRATIVE: CASE EVENT DATE: 20200411
